FAERS Safety Report 21519035 (Version 2)
Quarter: 2022Q4

REPORT INFORMATION
  Report Type: Spontaneous
  Country: CN (occurrence: CN)
  Receive Date: 20221028
  Receipt Date: 20221102
  Transmission Date: 20230112
  Serious: Yes (Death)
  Sender: FDA-Public Use
  Company Number: CN-JNJFOC-20221045176

PATIENT
  Age: 19 Year
  Sex: Male

DRUGS (1)
  1. DARZALEX [Suspect]
     Active Substance: DARATUMUMAB
     Indication: T-cell type acute leukaemia
     Route: 065

REACTIONS (6)
  - Pneumonia klebsiella [Fatal]
  - Acinetobacter infection [Fatal]
  - Respiratory moniliasis [Fatal]
  - Cytomegalovirus infection [Fatal]
  - Off label use [Unknown]
  - Infusion related reaction [Unknown]
